FAERS Safety Report 4719443-1 (Version None)
Quarter: 2005Q3

REPORT INFORMATION
  Report Type: 
  Country: None (occurrence: None)
  Receive Date: 20050719
  Receipt Date: 20050711
  Transmission Date: 20060218
  Serious: Yes (Hospitalization)
  Sender: FDA-Public Use
  Company Number: 200512122GDS

PATIENT
  Age: 78 Year
  Sex: Female

DRUGS (3)
  1. ASPIRIN [Suspect]
     Dosage: 100 MG, TOTAL DAILY
     Dates: start: 19960101
  2. WARFARIN [Suspect]
     Dosage: 1.5 MG, TOTAL DAILY
     Dates: start: 19960101
  3. PARAMIDIN (BUCOLOME) [Suspect]
     Dosage: 300 MG, TOTAL DAILY
     Dates: start: 19960101

REACTIONS (8)
  - ANAEMIA [None]
  - CAPILLARY DISORDER [None]
  - DISEASE RECURRENCE [None]
  - GASTROINTESTINAL DISORDER [None]
  - INTESTINAL HAEMORRHAGE [None]
  - MELAENA [None]
  - RECTAL HAEMORRHAGE [None]
  - THROMBOSIS [None]
